FAERS Safety Report 7590964-X (Version None)
Quarter: 2011Q3

REPORT INFORMATION
  Report Type: 
  Country: None (occurrence: None)
  Receive Date: 20110705
  Receipt Date: 20110629
  Transmission Date: 20111222
  Serious: Yes (Death, Other)
  Sender: FDA-Public Use
  Company Number: PHHY2011AT28701

PATIENT
  Age: 41 Year
  Sex: Male
  Weight: 70 kg

DRUGS (1)
  1. TASIGNA [Suspect]
     Indication: CHRONIC MYELOID LEUKAEMIA
     Dosage: 400 MG, BID
     Route: 048
     Dates: start: 20091128, end: 20100212

REACTIONS (7)
  - GASTROINTESTINAL HAEMORRHAGE [None]
  - INFECTIOUS PERITONITIS [None]
  - DRUG RESISTANCE [None]
  - SEPSIS [None]
  - BLAST CRISIS IN MYELOGENOUS LEUKAEMIA [None]
  - DUODENAL ULCER [None]
  - INTESTINAL PERFORATION [None]
